FAERS Safety Report 5602451-6 (Version None)
Quarter: 2008Q1

REPORT INFORMATION
  Report Type: 
  Country: None (occurrence: None)
  Receive Date: 20080125
  Receipt Date: 20080125
  Transmission Date: 20080703
  Serious: Yes (Hospitalization)
  Sender: FDA-Public Use
  Company Number: A0705270A

PATIENT
  Sex: Male

DRUGS (3)
  1. ALLI [Suspect]
     Indication: DRUG USE FOR UNKNOWN INDICATION
     Route: 048
     Dates: start: 20060105
  2. EXCEDRIN (MIGRAINE) [Suspect]
     Indication: HEADACHE
     Route: 048
  3. ASPIRIN [Suspect]
     Indication: HEADACHE
     Route: 065

REACTIONS (14)
  - AMNESIA [None]
  - BARRETT'S OESOPHAGUS [None]
  - BLOOD GLUCOSE INCREASED [None]
  - DIABETES MELLITUS [None]
  - DIZZINESS [None]
  - FAECES DISCOLOURED [None]
  - HAEMATEMESIS [None]
  - HEADACHE [None]
  - HYPERHIDROSIS [None]
  - LOSS OF CONSCIOUSNESS [None]
  - NAUSEA [None]
  - PALLOR [None]
  - SYNCOPE [None]
  - VOMITING [None]
